FAERS Safety Report 14394438 (Version 1)
Quarter: 2018Q1

REPORT INFORMATION
  Report Type: Spontaneous
  Country: DK (occurrence: DK)
  Receive Date: 20180116
  Receipt Date: 20180116
  Transmission Date: 20180509
  Serious: Yes (Life-Threatening)
  Sender: FDA-Public Use
  Company Number: DK-TEVA-2018-DK-843867

PATIENT
  Age: 62 Year
  Sex: Male
  Weight: 84.3 kg

DRUGS (16)
  1. ALLOPURINOL. [Concomitant]
     Active Substance: ALLOPURINOL
     Indication: RENAL DISORDER
     Dosage: 300 MILLIGRAM DAILY;
     Route: 048
     Dates: start: 20171009
  2. CYCLOPHOSPHAMIDE. [Suspect]
     Active Substance: CYCLOPHOSPHAMIDE
     Indication: DIFFUSE LARGE B-CELL LYMPHOMA
     Dosage: DAY 1
     Route: 042
     Dates: start: 20171013
  3. RITUXIMAB. [Suspect]
     Active Substance: RITUXIMAB
     Indication: DIFFUSE LARGE B-CELL LYMPHOMA
     Dosage: DAY 1
     Route: 042
     Dates: start: 20171013
  4. PREDNISONE. [Suspect]
     Active Substance: PREDNISONE
     Indication: DIFFUSE LARGE B-CELL LYMPHOMA
     Dosage: DAY 1 TO 5
     Route: 065
     Dates: start: 20171013
  5. SULFAMETOXAZOL [Concomitant]
     Active Substance: SULFAMETHOXAZOLE
     Indication: INFECTION PROPHYLAXIS
     Dosage: 400 MILLIGRAM DAILY;
     Route: 048
     Dates: start: 20171013
  6. VINCRISTINE [Suspect]
     Active Substance: VINCRISTINE
     Indication: DIFFUSE LARGE B-CELL LYMPHOMA
     Dosage: DAY 1
     Route: 042
     Dates: start: 20171013
  7. ONDANSETRON [Concomitant]
     Active Substance: ONDANSETRON
     Indication: PROPHYLAXIS OF NAUSEA AND VOMITING
     Dosage: PRN
     Route: 048
     Dates: start: 20171009
  8. ACICLODAN [Concomitant]
     Indication: INFECTION PROPHYLAXIS
     Dosage: 1600 MILLIGRAM DAILY;
     Route: 048
     Dates: start: 20171013
  9. MOVICOL [Concomitant]
     Active Substance: POLYETHYLENE GLYCOL 3350\POTASSIUM CHLORIDE\SODIUM BICARBONATE\SODIUM CHLORIDE
     Indication: CONSTIPATION PROPHYLAXIS
     Dosage: 1 DOSAGE FORMS DAILY;
     Route: 048
     Dates: start: 20171011, end: 20171012
  10. DURVALUMAB. [Suspect]
     Active Substance: DURVALUMAB
     Indication: DIFFUSE LARGE B-CELL LYMPHOMA
     Route: 042
     Dates: start: 20171013
  11. PEGFILGASTIM [Concomitant]
     Indication: PROPHYLAXIS
     Dosage: PRN
     Route: 058
     Dates: start: 20171016
  12. TAVEGYL [Concomitant]
     Active Substance: CLEMASTINE FUMARATE
     Indication: PROPHYLAXIS
     Route: 048
     Dates: start: 20171009
  13. PARACETAMOL [Concomitant]
     Active Substance: ACETAMINOPHEN
     Indication: PROPHYLAXIS
     Dosage: PRN
     Route: 048
  14. DOXURUBICIN [Suspect]
     Active Substance: DOXORUBICIN
     Indication: DIFFUSE LARGE B-CELL LYMPHOMA
     Dosage: DAY 1
     Route: 042
     Dates: start: 20171013
  15. PREDNISOLONE. [Concomitant]
     Active Substance: PREDNISOLONE
     Indication: NEOPLASM
     Dosage: 100 MILLIGRAM DAILY;
     Route: 048
  16. MAGNESIA [Concomitant]
     Active Substance: MAGNESIUM HYDROXIDE
     Indication: CONSTIPATION PROPHYLAXIS
     Dosage: 1 GRAM DAILY;
     Route: 048
     Dates: start: 20171011, end: 20171012

REACTIONS (1)
  - Anaemia [Recovered/Resolved]

NARRATIVE: CASE EVENT DATE: 20171023
